FAERS Safety Report 20847766 (Version 3)
Quarter: 2022Q3

REPORT INFORMATION
  Report Type: Spontaneous
  Country: JP (occurrence: None)
  Receive Date: 20220519
  Receipt Date: 20220715
  Transmission Date: 20221026
  Serious: Yes (Hospitalization)
  Sender: FDA-Public Use
  Company Number: JP-Orion Corporation ORION PHARMA-ENT 2022-0050

PATIENT
  Age: 93 Year
  Sex: Male

DRUGS (2)
  1. ENTACAPONE [Suspect]
     Active Substance: ENTACAPONE
     Indication: Parkinson^s disease
     Route: 048
  2. CARBIDOPA\LEVODOPA [Concomitant]
     Active Substance: CARBIDOPA\LEVODOPA
     Route: 065

REACTIONS (1)
  - Compression fracture [Recovering/Resolving]
